FAERS Safety Report 9208097 (Version 1)
Quarter: 2013Q2

REPORT INFORMATION
  Report Type: Spontaneous
  Country: NL (occurrence: NL)
  Receive Date: 20130403
  Receipt Date: 20130403
  Transmission Date: 20140414
  Serious: Yes (Death)
  Sender: FDA-Public Use
  Company Number: CHNY2013NL000904

PATIENT
  Age: 57 Year
  Sex: Male

DRUGS (17)
  1. SCOPODERM TTS [Suspect]
     Indication: NIGHT SWEATS
     Dosage: 1.5 MG, ONCE/SINGLE
     Route: 062
     Dates: start: 20130319, end: 20130319
  2. MIDAZOLAM [Concomitant]
     Dosage: 1 ML, TID
  3. MORPHINE [Concomitant]
     Dosage: 1 ML, TID
  4. FENTANYL [Concomitant]
     Dosage: 1 DF, Q72H
     Route: 062
  5. LORAZEPAM [Concomitant]
     Dosage: 1 MG, QD
     Route: 048
  6. AMITRIPTYLINE [Concomitant]
     Dosage: 25 MG, QD
     Route: 048
  7. DEXAMETHASONE [Concomitant]
     Dosage: 4 MG, QD
     Route: 048
  8. ETORICOXIB [Concomitant]
     Dosage: 60 MG, QD
     Route: 048
  9. MACROGOL [Concomitant]
     Dosage: 4 G, BID
     Route: 048
  10. METOCLOPRAMIDE [Concomitant]
     Dosage: 10 MG, PRN
     Route: 048
  11. NADROPARIN [Concomitant]
     Dosage: 0.6 ML, QD
  12. OXYCODONE [Concomitant]
     Dosage: 20 MG, BID
     Route: 048
  13. PARACETAMOL [Concomitant]
     Dosage: 1000 MG, QID
  14. PREGABALIN [Concomitant]
     Dosage: 150 MG, TID
     Route: 048
  15. TEMAZEPAM [Concomitant]
     Dosage: 10 MG, QD
     Route: 048
  16. ERLOTINIB [Concomitant]
     Dosage: 150 MG, QD
     Route: 048
  17. OXAZEPAM [Concomitant]
     Dosage: 10 MG, PRN
     Route: 048

REACTIONS (1)
  - Cerebrovascular accident [Fatal]
